FAERS Safety Report 19148597 (Version 2)
Quarter: 2021Q3

REPORT INFORMATION
  Report Type: Spontaneous
  Country: AU (occurrence: AU)
  Receive Date: 20210416
  Receipt Date: 20210722
  Transmission Date: 20211014
  Serious: Yes (Other)
  Sender: FDA-Public Use
  Company Number: AU-BRISTOL-MYERS SQUIBB COMPANY-BMS-2021-034871

PATIENT
  Age: 55 Year
  Sex: Male

DRUGS (2)
  1. NIVOLUMAB [Suspect]
     Active Substance: NIVOLUMAB
     Indication: OESOPHAGEAL CARCINOMA
     Dosage: 240 MILLIGRAM, Q2WK
     Route: 065
  2. FOLFOX [Suspect]
     Active Substance: FLUOROURACIL\LEUCOVORIN CALCIUM\OXALIPLATIN
     Indication: OESOPHAGEAL CARCINOMA
     Route: 065

REACTIONS (3)
  - Vasospasm [Unknown]
  - Neuropathy peripheral [Unknown]
  - Nausea [Unknown]
